FAERS Safety Report 8344194-4 (Version None)
Quarter: 2012Q2

REPORT INFORMATION
  Report Type: 
  Country: None (occurrence: None)
  Receive Date: 20120508
  Receipt Date: 20110309
  Transmission Date: 20120825
  Serious: No
  Sender: FDA-Public Use
  Company Number: US-TEVA-2011001146

PATIENT
  Age: 40 Year
  Sex: Male

DRUGS (3)
  1. TREANDA [Suspect]
     Indication: CHRONIC LYMPHOCYTIC LEUKAEMIA
     Route: 042
  2. RITUXAN [Concomitant]
  3. BENADRYL [Concomitant]

REACTIONS (2)
  - URINARY RETENTION [None]
  - FLANK PAIN [None]
